FAERS Safety Report 6525857-X (Version None)
Quarter: 2010Q1

REPORT INFORMATION
  Report Type: 
  Country: None (occurrence: None)
  Receive Date: 20100104
  Receipt Date: 20091224
  Transmission Date: 20100710
  Serious: Yes (Other)
  Sender: FDA-Public Use
  Company Number: B0621354A

PATIENT
  Age: 58 Year
  Sex: Female

DRUGS (16)
  1. VALTREX [Suspect]
     Indication: ORAL HERPES
     Route: 048
     Dates: start: 20091222, end: 20091223
  2. ZYLORIC [Concomitant]
     Route: 048
     Dates: start: 20091208
  3. ALFAROL [Concomitant]
     Route: 048
     Dates: start: 20091208
  4. ADALAT CC [Concomitant]
     Route: 048
     Dates: start: 20091208
  5. CARDENALIN [Concomitant]
     Dosage: 4MG TWICE PER DAY
     Route: 048
     Dates: start: 20091208
  6. BLOPRESS [Concomitant]
     Dosage: 8MG PER DAY
     Route: 048
     Dates: start: 20091208
  7. ZOPICOOL [Concomitant]
     Dosage: 7.5MG PER DAY
     Route: 048
     Dates: start: 20091208
  8. RENAGEL [Concomitant]
     Route: 048
     Dates: start: 20091208
  9. D-SORBITOL [Concomitant]
     Route: 065
     Dates: start: 20091208
  10. LAXOBERON [Concomitant]
     Route: 048
     Dates: start: 20091208
  11. KALIMATE [Concomitant]
     Dosage: 1U PER DAY
     Route: 048
     Dates: start: 20091208
  12. BENET [Concomitant]
     Dosage: 17.5MG PER DAY
     Route: 048
     Dates: start: 20091208
  13. UNKNOWN DRUG [Concomitant]
     Dosage: 70MG PER DAY
     Route: 062
     Dates: start: 20091211
  14. UNKNOWN DRUG [Concomitant]
     Route: 048
     Dates: start: 20091211
  15. APLACE [Concomitant]
     Dosage: 200MG TWICE PER DAY
     Route: 048
     Dates: start: 20091211
  16. METHYCOBAL [Concomitant]
     Dosage: 1.5MG THREE TIMES PER DAY
     Route: 048
     Dates: start: 20091211

REACTIONS (2)
  - DYSARTHRIA [None]
  - FACIAL PALSY [None]
